FAERS Safety Report 23102113 (Version 3)
Quarter: 2023Q4

REPORT INFORMATION
  Report Type: Spontaneous
  Country: US (occurrence: US)
  Receive Date: 20231025
  Receipt Date: 20231221
  Transmission Date: 20240109
  Serious: No
  Sender: FDA-Public Use
  Company Number: US-UNITED THERAPEUTICS-UNT-2023-021112

PATIENT
  Sex: Male

DRUGS (8)
  1. REMODULIN [Suspect]
     Active Substance: TREPROSTINIL
     Indication: Pulmonary arterial hypertension
     Dosage: 0.02474 ?G/KG, CONTINUING
     Route: 058
     Dates: start: 2023, end: 2023
  2. REMODULIN [Suspect]
     Active Substance: TREPROSTINIL
     Dosage: 0.02563 ?G/KG, CONTINUING
     Route: 058
     Dates: start: 2023, end: 2023
  3. REMODULIN [Suspect]
     Active Substance: TREPROSTINIL
     Dosage: 0.02739 ?G/KG, CONTINUING
     Route: 058
     Dates: start: 2023, end: 2023
  4. REMODULIN [Suspect]
     Active Substance: TREPROSTINIL
     Dosage: 0.02828 ?G/KG, CONTINUING
     Route: 058
     Dates: start: 2023, end: 2023
  5. REMODULIN [Suspect]
     Active Substance: TREPROSTINIL
     Dosage: 0.03005 ?G/KG, CONTINUING
     Route: 058
     Dates: start: 2023
  6. REMODULIN [Suspect]
     Active Substance: TREPROSTINIL
     Dosage: 0.03035 ?G/KG, CONTINUING
     Route: 058
     Dates: start: 2023
  7. REMODULIN [Suspect]
     Active Substance: TREPROSTINIL
     Dosage: UNK, CONTINUING
     Route: 058
     Dates: start: 202303
  8. FUROSEMIDE [Suspect]
     Active Substance: FUROSEMIDE
     Indication: Infusion site swelling
     Dosage: 200 MG
     Route: 065
     Dates: start: 202310

REACTIONS (17)
  - Infusion site pain [Unknown]
  - Infusion site irritation [Unknown]
  - Infusion site discolouration [Unknown]
  - Infusion site discharge [Unknown]
  - Bloody discharge [Unknown]
  - Purulent discharge [Unknown]
  - Infusion site swelling [Not Recovered/Not Resolved]
  - Device failure [Unknown]
  - Infusion site infection [Not Recovered/Not Resolved]
  - Infusion site induration [Unknown]
  - Wheezing [Unknown]
  - Therapy non-responder [Unknown]
  - Infusion site discomfort [Unknown]
  - Fluid retention [Not Recovered/Not Resolved]
  - Peripheral swelling [Unknown]
  - Limb discomfort [Unknown]
  - Device maintenance issue [Unknown]

NARRATIVE: CASE EVENT DATE: 20230101
